FAERS Safety Report 9410077 (Version 1)
Quarter: 2013Q3

REPORT INFORMATION
  Report Type: Spontaneous
  Country: PL (occurrence: PL)
  Receive Date: 20130719
  Receipt Date: 20130719
  Transmission Date: 20140515
  Serious: Yes (Other)
  Sender: FDA-Public Use
  Company Number: PHHY2013PL074756

PATIENT
  Age: 53 Year
  Sex: Male
  Weight: 72 kg

DRUGS (2)
  1. FLUOROURACIL EBEWE [Suspect]
     Indication: GLOTTIS CARCINOMA
     Dosage: 2000 MG, UNK
     Route: 042
     Dates: start: 20120918, end: 20120918
  2. FLUOROURACIL EBEWE [Suspect]
     Dosage: 2000 MG, UNK
     Route: 042
     Dates: start: 20120919, end: 20120919

REACTIONS (12)
  - Blood pressure decreased [Recovered/Resolved]
  - Malaise [Recovered/Resolved]
  - Hyperhidrosis [Recovered/Resolved]
  - Pallor [Recovered/Resolved]
  - Nasopharyngitis [Recovered/Resolved]
  - Feeling hot [Recovered/Resolved]
  - Head circumference abnormal [Recovered/Resolved]
  - Chills [Recovered/Resolved]
  - Anxiety [Recovered/Resolved]
  - Nausea [Recovered/Resolved]
  - Headache [Recovered/Resolved]
  - Asthenia [Recovered/Resolved]
